FAERS Safety Report 5877851-X (Version None)
Quarter: 2008Q3

REPORT INFORMATION
  Report Type: 
  Country: None (occurrence: None)
  Receive Date: 20080911
  Receipt Date: 20080901
  Transmission Date: 20090109
  Serious: Yes (Hospitalization, Other)
  Sender: FDA-Public Use
  Company Number: CH-ELI_LILLY_AND_COMPANY-CH200809000547

PATIENT
  Age: 59 Year
  Sex: Male

DRUGS (7)
  1. ZYPREXA [Suspect]
     Dosage: 20 MG, DAILY (1/D)
     Route: 048
     Dates: start: 19990101, end: 20080812
  2. ZYPREXA [Suspect]
     Dosage: 15 MG, DAILY (1/D)
     Route: 048
     Dates: start: 20080813
  3. DEPAKENE [Concomitant]
     Dosage: 500 MG, DAILY (1/D)
     Route: 048
     Dates: start: 20080627, end: 20080629
  4. DEPAKENE [Concomitant]
     Dosage: 1000 MG, DAILY (1/D)
     Route: 048
     Dates: start: 20080630
  5. QUILONORM RETARD [Concomitant]
     Dosage: 1608 MG, DAILY (1/D)
     Route: 048
     Dates: start: 19940101
  6. ACTOS [Concomitant]
     Dosage: UNK UNK, DAILY (1/D)
     Dates: start: 20030101
  7. GLUCOPHAGE RETARD [Concomitant]
     Dosage: 500 MG, DAILY (1/D)
     Route: 048
     Dates: start: 20030101

REACTIONS (2)
  - HEPATIC ENZYME INCREASED [None]
  - HOSPITALISATION [None]
